FAERS Safety Report 9844846 (Version 3)
Quarter: 2014Q3

REPORT INFORMATION
  Report Type: Spontaneous
  Country: US (occurrence: None)
  Receive Date: 20140122
  Receipt Date: 20140812
  Transmission Date: 20150326
  Serious: Yes (Hospitalization, Other)
  Sender: FDA-Public Use
  Company Number: 2014-US-000135

PATIENT
  Age: 62 Year
  Sex: Male
  Weight: 114.7 kg

DRUGS (22)
  1. ACTOSE (PIOGLITAZONE HYDROCHLORIDE) [Concomitant]
  2. ALLOPURINOL. [Concomitant]
     Active Substance: ALLOPURINOL
  3. CO Q-10 (UBIDECARENONE) [Concomitant]
  4. FLAXSEED OIL (FLAXSEED OIL) [Concomitant]
  5. BUPIVICAINE (BUPIVICAINE HYDROCHLORIDE) [Concomitant]
  6. ADDERALL [Suspect]
     Active Substance: AMPHETAMINE ASPARTATE\AMPHETAMINE SULFATE\DEXTROAMPHETAMINE SACCHARATE\DEXTROAMPHETAMINE SULFATE
     Indication: NARCOLEPSY
     Route: 048
  7. GLUCOSAMINE (GLUCOSAMINE SULFATE) [Concomitant]
  8. GLYBURIDE/METFORMIN (GLIBENCLAMIDE, METFORMIN HYDROCHLORIDE) [Concomitant]
  9. PROBIOTIC ACIDOPHILUS (LACTOBACILLUS ACIDOPHILUS) [Concomitant]
  10. ALPHAGN P (BRIMONIDINE TARTRATE) [Concomitant]
  11. XYREM [Suspect]
     Active Substance: SODIUM OXYBATE
     Indication: NARCOLEPSY
     Route: 048
     Dates: start: 200212, end: 2003
  12. XYREM [Suspect]
     Active Substance: SODIUM OXYBATE
     Indication: INSOMNIA
     Route: 048
     Dates: start: 200212, end: 2003
  13. FLONASE [Concomitant]
     Active Substance: FLUTICASONE PROPIONATE
  14. SIMVASTATIN (SIMVASTATIN) [Concomitant]
     Active Substance: SIMVASTATIN
  15. RESTASIS (CICLOSPORIN) [Concomitant]
  16. ASTELIN (AZELASTINE HYDROCHLORIDE) [Concomitant]
     Active Substance: AZELASTINE HYDROCHLORIDE
  17. LYRICA [Concomitant]
     Active Substance: PREGABALIN
  18. XYREM [Suspect]
     Active Substance: SODIUM OXYBATE
     Indication: CATAPLEXY
     Route: 048
     Dates: start: 200212, end: 2003
  19. XYREM [Suspect]
     Active Substance: SODIUM OXYBATE
     Indication: SOMNOLENCE
     Route: 048
     Dates: start: 200212, end: 2003
  20. DURAMORPH (MORPHINE SULFATE) [Concomitant]
  21. FLOMAX [Concomitant]
     Active Substance: TAMSULOSIN HYDROCHLORIDE
  22. MELATONIN LIQUID [Concomitant]

REACTIONS (5)
  - Hypertension [None]
  - Myocardial ischaemia [None]
  - Rales [None]
  - Atrial fibrillation [None]
  - Cardiac failure congestive [None]

NARRATIVE: CASE EVENT DATE: 201312
